FAERS Safety Report 13301126 (Version 2)
Quarter: 2017Q1

REPORT INFORMATION
  Report Type: Report from Study
  Country: MY (occurrence: MY)
  Receive Date: 20170307
  Receipt Date: 20170310
  Transmission Date: 20170428
  Serious: Yes (Death)
  Sender: FDA-Public Use
  Company Number: PHHY2017MY034285

PATIENT
  Age: 84 Year
  Sex: Male

DRUGS (3)
  1. FINASTERIDE. [Concomitant]
     Active Substance: FINASTERIDE
     Indication: PRODUCT USED FOR UNKNOWN INDICATION
     Dosage: 5 MG, (ON NIGHT)
     Route: 065
  2. TERAZOSIN [Concomitant]
     Active Substance: TERAZOSIN\TERAZOSIN HYDROCHLORIDE
     Indication: PRODUCT USED FOR UNKNOWN INDICATION
     Dosage: 5 MG, (ON NIGHT)
     Route: 065
  3. GLIVEC [Suspect]
     Active Substance: IMATINIB MESYLATE
     Indication: GASTROINTESTINAL STROMAL TUMOUR
     Dosage: 400 MG, UNK
     Route: 065
     Dates: start: 20160329, end: 20170124

REACTIONS (10)
  - Eating disorder [Unknown]
  - Blood creatinine increased [Unknown]
  - Therapeutic response decreased [Unknown]
  - Fall [Unknown]
  - Malaise [Unknown]
  - Death [Fatal]
  - Blood alkaline phosphatase increased [Unknown]
  - General physical health deterioration [Unknown]
  - White blood cell count decreased [Unknown]
  - Haemoglobin decreased [Unknown]

NARRATIVE: CASE EVENT DATE: 20170109
